FAERS Safety Report 8414936-8 (Version None)
Quarter: 2012Q2

REPORT INFORMATION
  Report Type: 
  Country: None (occurrence: None)
  Receive Date: 20120601
  Receipt Date: 20120601
  Transmission Date: 20120825
  Serious: Yes (Life-Threatening)
  Sender: FDA-Public Use
  Company Number: None

PATIENT
  Sex: Female
  Weight: 108.8633 kg

DRUGS (2)
  1. RIBAVIRIN [Suspect]
     Indication: HEPATITIS C
     Dosage: 400MG BID PO
     Route: 048
     Dates: start: 20120314, end: 20120531
  2. PEG-INTRON [Suspect]
     Indication: HEPATITIS C
     Dosage: 150MCG ONCE WEEKLY SQ
     Route: 058
     Dates: start: 20120314, end: 20120531

REACTIONS (1)
  - SUICIDAL IDEATION [None]
